FAERS Safety Report 9995748 (Version 2)
Quarter: 2014Q1

REPORT INFORMATION
  Report Type: Report from Study
  Country: DE (occurrence: DE)
  Receive Date: 20140311
  Receipt Date: 20140311
  Transmission Date: 20141002
  Serious: Yes (Hospitalization)
  Sender: FDA-Public Use
  Company Number: DE-B.I. PHARMACEUTICALS,INC./RIDGEFIELD-2013-BI-28568BI

PATIENT
  Age: 64 Year
  Sex: Male
  Weight: 106 kg

DRUGS (5)
  1. BI 207127 [Suspect]
     Indication: HEPATITIS C
     Dosage: 1200 MG
     Route: 048
     Dates: start: 20130708
  2. BI 201335 [Suspect]
     Indication: HEPATITIS C
     Route: 065
     Dates: start: 20130708
  3. BI 201335 [Suspect]
     Indication: HEPATITIS C
     Dosage: 120 MG
     Route: 048
     Dates: start: 20130708
  4. RIBAVIRIN [Suspect]
     Indication: HEPATITIS C
     Dosage: 1200 MG
     Route: 048
     Dates: start: 20130708
  5. RAMIPRIL [Concomitant]
     Indication: HYPERTENSION
     Dosage: 5 MG
     Route: 048

REACTIONS (1)
  - Depression [Recovered/Resolved]
